FAERS Safety Report 17201105 (Version 1)
Quarter: 2019Q4

REPORT INFORMATION
  Report Type: Report from Study
  Country: US (occurrence: US)
  Receive Date: 20191226
  Receipt Date: 20191226
  Transmission Date: 20200122
  Serious: Yes (Hospitalization)
  Sender: FDA-Public Use
  Company Number: US-ROCHE-2502112

PATIENT
  Age: 84 Year
  Sex: Male
  Weight: 83.99 kg

DRUGS (1)
  1. ESBRIET [Suspect]
     Active Substance: PIRFENIDONE
     Indication: PRODUCT USED FOR UNKNOWN INDICATION
     Dosage: THREE TABLETS THREE TIMES A DAY ;ONGOING: NO
     Route: 048
     Dates: start: 201904, end: 201908

REACTIONS (3)
  - Liver function test increased [Recovered/Resolved]
  - Feeling abnormal [Recovered/Resolved]
  - Thermal burn [Unknown]

NARRATIVE: CASE EVENT DATE: 20190830
